FAERS Safety Report 5974143-5 (Version None)
Quarter: 2008Q4

REPORT INFORMATION
  Report Type: 
  Country: None (occurrence: None)
  Receive Date: 20081201
  Receipt Date: 20081119
  Transmission Date: 20090506
  Serious: Yes (Death, Hospitalization, Other)
  Sender: FDA-Public Use
  Company Number: JP-PFIZER INC-2007074475

PATIENT
  Sex: Female

DRUGS (6)
  1. CAMPTOSAR [Suspect]
     Indication: RECTAL CANCER
     Route: 042
     Dates: start: 20070723, end: 20070723
  2. FLUOROURACIL [Suspect]
     Indication: RECTAL CANCER
     Dosage: TEXT:500 MG BOLUS
     Route: 042
     Dates: start: 20070723, end: 20070723
  3. FLUOROURACIL [Suspect]
     Dosage: TEXT:3000 MG INFUSION
     Route: 042
     Dates: start: 20070723, end: 20070723
  4. LEUCOVORIN CALCIUM [Suspect]
     Indication: RECTAL CANCER
     Route: 013
     Dates: start: 20070723, end: 20070723
  5. NASEA [Concomitant]
     Indication: PREMEDICATION
     Route: 042
     Dates: start: 20070723, end: 20070723
  6. DECADRON [Concomitant]
     Indication: PREMEDICATION
     Route: 042
     Dates: start: 20070723, end: 20070723

REACTIONS (5)
  - ANOREXIA [None]
  - GASTROINTESTINAL NECROSIS [None]
  - LEUKOPENIA [None]
  - NEUTROPENIA [None]
  - THROMBOCYTOPENIA [None]
